FAERS Safety Report 4672429-8 (Version None)
Quarter: 2005Q2

REPORT INFORMATION
  Report Type: 
  Country: None (occurrence: None)
  Receive Date: 20050520
  Receipt Date: 20050520
  Transmission Date: 20051028
  Serious: No
  Sender: FDA-Public Use
  Company Number: None

PATIENT
  Age: 17 Year
  Sex: Male

DRUGS (3)
  1. MELATONIN  1 MG [Suspect]
     Indication: INSOMNIA
     Dosage: 1 MG HS
  2. TRILEPTAL [Concomitant]
  3. MIRTAZAPINE [Concomitant]

REACTIONS (1)
  - TONGUE DISORDER [None]
